FAERS Safety Report 10333685 (Version 2)
Quarter: 2014Q3

REPORT INFORMATION
  Report Type: Spontaneous
  Country: US (occurrence: US)
  Receive Date: 20140723
  Receipt Date: 20140723
  Transmission Date: 20150326
  Serious: No
  Sender: FDA-Public Use
  Company Number: US-UNITED THERAPEUTICS-UTC-048105

PATIENT
  Age: 58 Year
  Sex: Female
  Weight: 71.2 kg

DRUGS (1)
  1. TYVASO [Suspect]
     Active Substance: TREPROSTINIL
     Dosage: 18-54 ?G, QID
     Dates: start: 20140410

REACTIONS (9)
  - Palpitations [Unknown]
  - Dyspnoea [Unknown]
  - Heart rate increased [Unknown]
  - Headache [Unknown]
  - Asthenia [Unknown]
  - Cardiac flutter [Unknown]
  - Hypotension [Unknown]
  - Chest discomfort [Unknown]
  - Throat irritation [Unknown]

NARRATIVE: CASE EVENT DATE: 201404
